FAERS Safety Report 5415012-9 (Version None)
Quarter: 2007Q3

REPORT INFORMATION
  Report Type: 
  Country: None (occurrence: None)
  Receive Date: 20070813
  Receipt Date: 20070813
  Transmission Date: 20080115
  Serious: Yes (Other)
  Sender: FDA-Public Use
  Company Number: None

PATIENT
  Age: 36 Year
  Sex: Male
  Weight: 72.5755 kg

DRUGS (1)
  1. EQUALINE SPF 30 SPORT SUNSCREEN SPF 30 ALBERTSON'S [Suspect]
     Indication: PROPHYLAXIS AGAINST SOLAR RADIATION
     Dosage: 2 APPLICATIONS HEAVY 2X PER 8 HOURS TOP
     Route: 061
     Dates: start: 20070808, end: 20070808

REACTIONS (6)
  - DISCOMFORT [None]
  - DRUG INEFFECTIVE [None]
  - PAIN [None]
  - PHOTODERMATOSIS [None]
  - PHOTOSENSITIVITY REACTION [None]
  - SUNBURN [None]
